FAERS Safety Report 7346401-3 (Version None)
Quarter: 2011Q1

REPORT INFORMATION
  Report Type: 
  Country: None (occurrence: None)
  Receive Date: 20110225
  Receipt Date: 20110117
  Transmission Date: 20110831
  Serious: No
  Sender: FDA-Public Use
  Company Number: 321739

PATIENT
  Age: 71 Year
  Sex: Male

DRUGS (3)
  1. VICTOZA [Suspect]
     Indication: TYPE 2 DIABETES MELLITUS
     Dosage: 1.8 MG, QD (1.2 MG AM, 0.6 MG PM), SUBCUTANEOUS
     Route: 058
     Dates: start: 20100101
  2. GLUCOVANCE (GLIBENCLAMDIE, METFORMIN HYDROCHLORIDE) [Concomitant]
  3. LANTUS [Concomitant]

REACTIONS (1)
  - BLOOD GLUCOSE DECREASED [None]
